FAERS Safety Report 6976933-9 (Version None)
Quarter: 2010Q3

REPORT INFORMATION
  Report Type: 
  Country: None (occurrence: None)
  Receive Date: 20100910
  Receipt Date: 20100831
  Transmission Date: 20110219
  Serious: Yes (Hospitalization)
  Sender: FDA-Public Use
  Company Number: ES-PFIZER INC-2010109835

PATIENT
  Age: 80 Year
  Sex: Female

DRUGS (2)
  1. LYRICA [Suspect]
     Indication: SPINAL COMPRESSION FRACTURE
     Dosage: 25 MG, 2X/DAY
     Route: 048
     Dates: start: 20090101, end: 20100601
  2. LYRICA [Suspect]
     Dosage: 75 MG, 2X/DAY
     Route: 048
     Dates: start: 20100601, end: 20100623

REACTIONS (2)
  - CARDIAC FAILURE [None]
  - CONCOMITANT DISEASE AGGRAVATED [None]
